FAERS Safety Report 5801294-8 (Version None)
Quarter: 2008Q3

REPORT INFORMATION
  Report Type: 
  Country: None (occurrence: None)
  Receive Date: 20080707
  Receipt Date: 20080630
  Transmission Date: 20090109
  Serious: Yes (Death)
  Sender: FDA-Public Use
  Company Number: CA-JNJFOC-20080602588

PATIENT
  Sex: Male

DRUGS (11)
  1. LEVAQUIN [Suspect]
     Indication: LOWER RESPIRATORY TRACT INFECTION
     Route: 065
  2. LAXATIVES [Concomitant]
  3. APO-FLUVOXAMINE [Concomitant]
     Indication: DEPRESSION
  4. METFORMIN HCL [Concomitant]
     Indication: DIABETES MELLITUS
     Route: 048
  5. RABEPRAZOLE SODIUM [Concomitant]
     Indication: DRUG USE FOR UNKNOWN INDICATION
  6. APO-LEVOCARB [Concomitant]
     Indication: PARKINSON'S DISEASE
  7. RISPERIDONE [Concomitant]
     Indication: DRUG USE FOR UNKNOWN INDICATION
  8. VALPROATE SODIUM [Concomitant]
     Indication: ABNORMAL BEHAVIOUR
  9. VALPROATE SODIUM [Concomitant]
     Indication: DEMENTIA
  10. NOVOLIN [Concomitant]
     Indication: DIABETES MELLITUS
  11. ACETAMINOPHEN [Concomitant]
     Indication: PAIN

REACTIONS (1)
  - DEATH [None]
